FAERS Safety Report 5391510-1 (Version None)
Quarter: 2007Q3

REPORT INFORMATION
  Report Type: 
  Country: None (occurrence: None)
  Receive Date: 20070719
  Receipt Date: 20070712
  Transmission Date: 20080115
  Serious: Yes (Death)
  Sender: FDA-Public Use
  Company Number: JP-BRISTOL-MYERS SQUIBB COMPANY-13844071

PATIENT
  Age: 61 Year
  Sex: Male

DRUGS (6)
  1. MITOMYCIN-C BULK POWDER [Suspect]
     Indication: PANCREATIC CARCINOMA
     Route: 013
     Dates: start: 20040827
  2. MITOMYCIN-C BULK POWDER [Suspect]
     Indication: METASTASES TO LIVER
     Route: 013
     Dates: start: 20040827
  3. FLUOROURACIL [Suspect]
     Indication: PANCREATIC CARCINOMA
     Route: 013
     Dates: start: 20040827
  4. FLUOROURACIL [Suspect]
     Indication: METASTASES TO LIVER
     Route: 013
     Dates: start: 20040827
  5. EPIRUBICIN HCL [Concomitant]
     Indication: PANCREATIC CARCINOMA
     Route: 013
     Dates: start: 20040827
  6. EPIRUBICIN HCL [Concomitant]
     Indication: METASTASES TO LIVER
     Route: 013
     Dates: start: 20040827

REACTIONS (2)
  - CHOLANGITIS [None]
  - LIVER ABSCESS [None]
